FAERS Safety Report 9535350 (Version 2)
Quarter: 2013Q4

REPORT INFORMATION
  Report Type: Spontaneous
  Country: US (occurrence: US)
  Receive Date: 20130918
  Receipt Date: 20131112
  Transmission Date: 20140711
  Serious: Yes (Hospitalization, Other)
  Sender: FDA-Public Use
  Company Number: US-PFIZER INC-2013268888

PATIENT
  Age: 24 Year
  Sex: Female

DRUGS (3)
  1. PRISTIQ [Suspect]
     Indication: MAJOR DEPRESSION
     Dosage: 50 MG, DAILY
     Route: 048
  2. WELLBUTRIN [Suspect]
     Indication: MAJOR DEPRESSION
     Dosage: 150 MG, DAILY
  3. ADDERALL [Suspect]
     Dosage: 30 MG, DAILY

REACTIONS (2)
  - Aggression [Recovered/Resolved]
  - Serotonin syndrome [Unknown]
